FAERS Safety Report 7959104-9 (Version None)
Quarter: 2011Q4

REPORT INFORMATION
  Report Type: 
  Country: None (occurrence: None)
  Receive Date: 20111206
  Receipt Date: 20111206
  Transmission Date: 20120403
  Serious: Yes (Life-Threatening)
  Sender: FDA-Public Use
  Company Number: None

PATIENT
  Age: 58 Year
  Sex: Female
  Weight: 77.11 kg

DRUGS (2)
  1. AZITHROMYCIN [Suspect]
     Indication: PHARYNGEAL DISORDER
     Dosage: 250MG
     Route: 048
     Dates: start: 20110822, end: 20110822
  2. AZITHROMYCIN [Suspect]
     Indication: COUGH
     Dosage: 250MG
     Route: 048
     Dates: start: 20110822, end: 20110822

REACTIONS (6)
  - PRURITUS [None]
  - MIDDLE INSOMNIA [None]
  - SWOLLEN TONGUE [None]
  - RASH GENERALISED [None]
  - BURNING SENSATION [None]
  - DYSPHAGIA [None]
